FAERS Safety Report 9008103 (Version 1)
Quarter: 2012Q4

REPORT INFORMATION
  Report Type: Spontaneous
  Country: AU (occurrence: None)
  Receive Date: 20121227
  Receipt Date: 20121227
  Transmission Date: 20130627
  Serious: Yes (Hospitalization)
  Sender: FDA-Public Use
  Company Number: COL_12885_2012

PATIENT
  Sex: Male

DRUGS (1)
  1. NEUTRAFLUOR 5000 PLUS TOOTHPASTE (SODIUM FLUORIDE 500 MG/100G) [Suspect]
     Indication: DENTAL CARIES
     Route: 048

REACTIONS (4)
  - Osteoporosis [None]
  - Hip fracture [None]
  - Hypoaesthesia oral [None]
  - Fall [None]
